FAERS Safety Report 12717878 (Version 2)
Quarter: 2016Q4

REPORT INFORMATION
  Report Type: Spontaneous
  Country: CN (occurrence: CN)
  Receive Date: 20160906
  Receipt Date: 20161107
  Transmission Date: 20170207
  Serious: Yes (Death, Life-Threatening, Other)
  Sender: FDA-Public Use
  Company Number: CN-PFIZER INC-2016413500

PATIENT
  Age: 44 Year
  Sex: Female

DRUGS (7)
  1. VANCOMYCIN [Concomitant]
     Active Substance: VANCOMYCIN
     Indication: PYREXIA
     Dosage: UNK
  2. TIGECYCLINE. [Suspect]
     Active Substance: TIGECYCLINE
     Dosage: 50 MG, 2X/DAY (EVERY 12 HOURS)
     Route: 042
  3. FOSFOMYCIN [Suspect]
     Active Substance: FOSFOMYCIN
     Dosage: 8 G, 2X/DAY (EVERY 12 HOURS)
     Route: 042
  4. CILASTATIN/IMIPENEM [Suspect]
     Active Substance: CILASTATIN SODIUM\IMIPENEM
     Indication: PYREXIA
     Dosage: UNK
  5. CICLOSPORIN [Suspect]
     Active Substance: CYCLOSPORINE
     Indication: APLASTIC ANAEMIA
     Dosage: UNK
  6. AMIKACIN [Suspect]
     Active Substance: AMIKACIN
     Dosage: 0.4 G, DAILY
     Route: 042
  7. TESTOSTERONE. [Concomitant]
     Active Substance: TESTOSTERONE
     Indication: APLASTIC ANAEMIA
     Dosage: UNK

REACTIONS (6)
  - Coma [Fatal]
  - Chest pain [None]
  - Multiple-drug resistance [Fatal]
  - Pathogen resistance [Fatal]
  - Haemoptysis [Fatal]
  - Klebsiella infection [Fatal]
